FAERS Safety Report 16920147 (Version 1)
Quarter: 2019Q4

REPORT INFORMATION
  Report Type: Spontaneous
  Country: US (occurrence: US)
  Receive Date: 20191015
  Receipt Date: 20191015
  Transmission Date: 20200122
  Serious: No
  Sender: FDA-Public Use
  Company Number: US-LANNETT COMPANY, INC.-US-2019LAN000947

PATIENT

DRUGS (1)
  1. BUTALBITAL, ACETAMINOPHEN, AND CAFFEINE [Suspect]
     Active Substance: ACETAMINOPHEN\BUTALBITAL\CAFFEINE
     Indication: SWELLING FACE
     Dosage: 1 DF, PRN (50 MG/325 MG/40 MG)
     Route: 048
     Dates: start: 20190430

REACTIONS (4)
  - Chest pain [Recovered/Resolved]
  - Oesophageal irritation [Recovered/Resolved]
  - Reaction to excipient [Unknown]
  - Abdominal pain upper [Recovered/Resolved]

NARRATIVE: CASE EVENT DATE: 20190430
